FAERS Safety Report 8967978 (Version 1)
Quarter: 2012Q4

REPORT INFORMATION
  Report Type: 
  Country: US (occurrence: US)
  Receive Date: 20121217
  Receipt Date: 20121217
  Transmission Date: 20130627
  Serious: No
  Sender: FDA-Public Use
  Company Number: US-B.I. PHARMACEUTICALS,INC./RIDGEFIELD-2012-BI-02554BP

PATIENT
  Sex: Female
  Weight: 83 kg

DRUGS (3)
  1. ZANTAC (RANITIDINE HYDROCHLORIDE) [Suspect]
     Indication: DYSPEPSIA
     Dosage: 150 mg
     Route: 048
     Dates: start: 201205
  2. LIPITOR [Concomitant]
     Indication: BLOOD CHOLESTEROL INCREASED
     Route: 048
     Dates: start: 2007
  3. CALTRATE [Concomitant]
     Indication: SUPPLEMENTATION THERAPY
     Dosage: 1600 mg
     Route: 048
     Dates: start: 1970

REACTIONS (2)
  - Arthralgia [Recovered/Resolved]
  - Foot deformity [Not Recovered/Not Resolved]
